FAERS Safety Report 19816548 (Version 1)
Quarter: 2021Q3

REPORT INFORMATION
  Report Type: Spontaneous
  Country: US (occurrence: US)
  Receive Date: 20210910
  Receipt Date: 20210910
  Transmission Date: 20211014
  Serious: No
  Sender: FDA-Public Use
  Company Number: US-SA-2021SA296607

PATIENT
  Sex: Female

DRUGS (3)
  1. BIOTIN [Suspect]
     Active Substance: BIOTIN
     Dosage: UNK
  2. URSODEOXYCHOLIC ACID [Suspect]
     Active Substance: URSODIOL
     Dosage: UNK
  3. DUPIXENT [Suspect]
     Active Substance: DUPILUMAB
     Dosage: 200 MG, QOW
     Route: 058
     Dates: start: 201906

REACTIONS (2)
  - Abdominal discomfort [Unknown]
  - Blood alkaline phosphatase increased [Unknown]
